FAERS Safety Report 6568012-X (Version None)
Quarter: 2010Q1

REPORT INFORMATION
  Report Type: 
  Country: None (occurrence: None)
  Receive Date: 20100203
  Receipt Date: 20100122
  Transmission Date: 20100710
  Serious: Yes (Hospitalization)
  Sender: FDA-Public Use
  Company Number: FR-PFIZER INC-2010009005

PATIENT
  Age: 52 Year
  Sex: Male

DRUGS (10)
  1. TRIFLUCAN [Suspect]
     Dosage: 1 DF, 1X/DAY
     Route: 048
     Dates: start: 20091121, end: 20091121
  2. PYOSTACINE [Suspect]
     Indication: STAPHYLOCOCCAL INFECTION
     Dosage: 2 DF, 3X/DAY
     Route: 048
     Dates: start: 20091109, end: 20091119
  3. BRISTOPEN [Suspect]
     Dosage: 1000 MG, 2X/DAY
     Route: 048
     Dates: start: 20091121, end: 20091121
  4. DOMPERIDONE [Suspect]
     Dosage: UNK
     Dates: start: 20091121, end: 20091121
  5. FUCIDINE [Concomitant]
     Indication: STAPHYLOCOCCAL INFECTION
     Dosage: UNK
     Dates: start: 20091030, end: 20091109
  6. NEXIUM [Concomitant]
     Dosage: UNK
     Dates: start: 20091109, end: 20091116
  7. GAVISCON [Concomitant]
     Dosage: UNK
     Dates: start: 20091121
  8. CELESTENE [Concomitant]
     Dosage: UNK
     Dates: start: 20091109
  9. AERIUS [Concomitant]
     Dosage: UNK
     Dates: start: 20091109
  10. MEDROL [Concomitant]
     Indication: STAPHYLOCOCCAL INFECTION
     Dosage: UNK
     Dates: start: 20091030, end: 20091106

REACTIONS (2)
  - PRURITUS [None]
  - RASH MACULO-PAPULAR [None]
